FAERS Safety Report 15823680 (Version 1)
Quarter: 2019Q1

REPORT INFORMATION
  Report Type: Spontaneous
  Country: US (occurrence: US)
  Receive Date: 20190114
  Receipt Date: 20190114
  Transmission Date: 20190417
  Serious: No
  Sender: FDA-Public Use
  Company Number: US-009507513-1901USA004708

PATIENT
  Age: 57 Year
  Sex: Female

DRUGS (2)
  1. TEMODAR [Suspect]
     Active Substance: TEMOZOLOMIDE
     Dosage: 100 MILLIGRAM, EVERY 28 DAYS (ON DAY 8)
     Route: 048
  2. TEMODAR [Suspect]
     Active Substance: TEMOZOLOMIDE
     Indication: GLIOBLASTOMA MULTIFORME
     Dosage: 200 MILLIGRAM, EVERY 28 DAYS (DAILY FOR SEVEN DAYS)
     Route: 048

REACTIONS (1)
  - Nausea [Unknown]
